FAERS Safety Report 7880282-4 (Version None)
Quarter: 2011Q4

REPORT INFORMATION
  Report Type: 
  Country: None (occurrence: None)
  Receive Date: 20111101
  Receipt Date: 20111026
  Transmission Date: 20120403
  Serious: No
  Sender: FDA-Public Use
  Company Number: US-PFIZER INC-2011261782

PATIENT
  Sex: Female
  Weight: 53.5 kg

DRUGS (4)
  1. LORAZEPAM [Concomitant]
     Dosage: UNK
  2. TOPROL-XL [Concomitant]
     Dosage: UNK
  3. AMLODIPINE [Concomitant]
     Dosage: UNK
  4. GABAPENTIN [Suspect]
     Indication: SEDATIVE THERAPY
     Dosage: 100 MG, 6X/DAY
     Route: 048
     Dates: start: 20070801

REACTIONS (5)
  - DRUG INEFFECTIVE [None]
  - NAUSEA [None]
  - IRRITABILITY [None]
  - MALAISE [None]
  - DIZZINESS [None]
